FAERS Safety Report 6462362-3 (Version None)
Quarter: 2009Q4

REPORT INFORMATION
  Report Type: 
  Country: None (occurrence: None)
  Receive Date: 20091130
  Receipt Date: 20091112
  Transmission Date: 20100525
  Serious: Yes (Hospitalization)
  Sender: FDA-Public Use
  Company Number: ES-SANOFI-AVENTIS-200815146EU

PATIENT
  Age: 38 Year
  Sex: Male

DRUGS (9)
  1. PARACETAMOL [Interacting]
     Indication: PAIN
     Route: 048
  2. RIFAMPICIN [Suspect]
     Route: 042
  3. SILVER SULFADIAZINE [Concomitant]
     Indication: OPEN FRACTURE
     Route: 061
  4. CIPROFLOXACIN [Concomitant]
  5. PANTOPRAZOLE [Concomitant]
     Indication: DRUG USE FOR UNKNOWN INDICATION
     Route: 048
  6. ENOXAPARIN SODIUM [Concomitant]
     Indication: DRUG USE FOR UNKNOWN INDICATION
     Route: 058
  7. TRAMADOL HCL [Concomitant]
     Indication: DRUG USE FOR UNKNOWN INDICATION
     Route: 048
  8. OLANZAPINE [Concomitant]
     Route: 048
  9. SERTRALINE HCL [Concomitant]
     Route: 048

REACTIONS (5)
  - DRUG INEFFECTIVE [None]
  - DRUG INTERACTION [None]
  - GAMMA-GLUTAMYLTRANSFERASE INCREASED [None]
  - PAIN [None]
  - RASH [None]
